FAERS Safety Report 6160484-8 (Version None)
Quarter: 2009Q2

REPORT INFORMATION
  Report Type: 
  Country: None (occurrence: None)
  Receive Date: 20090420
  Receipt Date: 20090414
  Transmission Date: 20091009
  Serious: Yes (Hospitalization)
  Sender: FDA-Public Use
  Company Number: IT-BAYER-200918452GPV

PATIENT
  Age: 4 Year
  Sex: Male
  Weight: 13 kg

DRUGS (1)
  1. ASPIRIN [Suspect]
     Indication: STURGE-WEBER SYNDROME
     Dosage: AFTER ONE YEAR

REACTIONS (14)
  - ANAEMIA [None]
  - DEHYDRATION [None]
  - DIZZINESS [None]
  - EYELID OEDEMA [None]
  - HAEMANGIOMA [None]
  - HYPERTONIA [None]
  - HYPOTONIA [None]
  - IRRITABILITY [None]
  - LETHARGY [None]
  - PALLOR [None]
  - SWELLING FACE [None]
  - TACHYCARDIA [None]
  - TRAUMATIC HAEMATOMA [None]
  - VOMITING [None]
